FAERS Safety Report 9948882 (Version 1)
Quarter: 2014Q1

REPORT INFORMATION
  Report Type: Spontaneous
  Country: US (occurrence: US)
  Receive Date: 20140304
  Receipt Date: 20140304
  Transmission Date: 20141002
  Serious: No
  Sender: FDA-Public Use
  Company Number: US-SHIRE-US201400212

PATIENT
  Sex: 0

DRUGS (3)
  1. VYVANSE [Suspect]
     Indication: PRODUCT USED FOR UNKNOWN INDICATION
     Dosage: 80 MG, UNKNOWN
     Route: 048
     Dates: start: 2012
  2. VYVANSE [Suspect]
     Dosage: 90 MG, UNKNOWN
     Route: 048
  3. VYVANSE [Suspect]
     Dosage: 100 MG, UNKNOWN
     Route: 048

REACTIONS (6)
  - Abdominal pain [Unknown]
  - Irritability [Unknown]
  - Aggression [Unknown]
  - Dizziness [Unknown]
  - Feeling jittery [Unknown]
  - Prescribed overdose [Not Recovered/Not Resolved]
